FAERS Safety Report 6885505-6 (Version None)
Quarter: 2010Q3

REPORT INFORMATION
  Report Type: 
  Country: None (occurrence: None)
  Receive Date: 20100729
  Receipt Date: 20090205
  Transmission Date: 20110219
  Serious: Yes (Hospitalization, Other)
  Sender: FDA-Public Use
  Company Number: US-PFIZER INC-2009152686

PATIENT
  Sex: Female
  Weight: 67.131 kg

DRUGS (10)
  1. CELEBREX [Suspect]
     Indication: BACK PAIN
     Route: 048
     Dates: start: 20081219, end: 20081226
  2. CELEBREX [Suspect]
     Indication: NECK PAIN
  3. CELEBREX [Suspect]
     Indication: RHEUMATOID ARTHRITIS
  4. CITRACAL [Concomitant]
     Dosage: UNK
  5. VITAMIN D [Concomitant]
     Dosage: UNK
  6. ALBUTEROL [Concomitant]
     Dosage: UNK
  7. ADVAIR DISKUS 100/50 [Concomitant]
     Dosage: UNK
  8. SYMBICORT [Concomitant]
     Dosage: UNK
  9. WATER PILL [Concomitant]
     Dosage: UNK
  10. FUROSEMIDE [Concomitant]
     Dosage: UNK

REACTIONS (5)
  - HYPOAESTHESIA [None]
  - PAIN [None]
  - PARAESTHESIA [None]
  - SINUSITIS [None]
  - SWELLING [None]
